FAERS Safety Report 7320956-7 (Version None)
Quarter: 2011Q1

REPORT INFORMATION
  Report Type: 
  Country: None (occurrence: None)
  Receive Date: 20110228
  Receipt Date: 20110218
  Transmission Date: 20110831
  Serious: Yes (Hospitalization, Other)
  Sender: FDA-Public Use
  Company Number: GB-JNJFOC-20110107281

PATIENT
  Age: 41 Year
  Sex: Male

DRUGS (5)
  1. CLOZARIL [Suspect]
     Route: 048
  2. CLOZARIL [Suspect]
     Indication: SCHIZOPHRENIA
     Route: 048
  3. CLOZARIL [Suspect]
     Route: 048
  4. HALOPERIDOL [Suspect]
     Indication: PRODUCT USED FOR UNKNOWN INDICATION
     Route: 065
  5. CITALOPRAM [Suspect]
     Indication: DEPRESSION
     Route: 065

REACTIONS (1)
  - MULTIPLE DRUG OVERDOSE [None]
